FAERS Safety Report 14600930 (Version 1)
Quarter: 2018Q1

REPORT INFORMATION
  Report Type: Spontaneous
  Country: US (occurrence: US)
  Receive Date: 20180304
  Receipt Date: 20180304
  Transmission Date: 20180509
  Serious: No
  Sender: FDA-Public Use
  Company Number: None

PATIENT
  Age: 79 Year
  Sex: Female

DRUGS (13)
  1. ZANTAC [Concomitant]
     Active Substance: RANITIDINE HYDROCHLORIDE
  2. ADCIRCA [Concomitant]
     Active Substance: TADALAFIL
  3. LOSARTAN. [Concomitant]
     Active Substance: LOSARTAN
  4. LEVOTHYROXINE. [Suspect]
     Active Substance: LEVOTHYROXINE
  5. HUMIRA [Concomitant]
     Active Substance: ADALIMUMAB
  6. FOLIC ACID. [Concomitant]
     Active Substance: FOLIC ACID
  7. ASPIRIN. [Concomitant]
     Active Substance: ASPIRIN
  8. BACLOFEN. [Concomitant]
     Active Substance: BACLOFEN
  9. PREDNISONE. [Concomitant]
     Active Substance: PREDNISONE
  10. VOLTAREN [Concomitant]
     Active Substance: DICLOFENAC SODIUM
  11. MECLIZINE [Concomitant]
     Active Substance: MECLIZINE HYDROCHLORIDE
  12. FERROUS SULFATE. [Concomitant]
     Active Substance: FERROUS SULFATE
  13. LETAIRIS [Suspect]
     Active Substance: AMBRISENTAN
     Indication: CARDIAC SEPTAL DEFECT
     Route: 048
     Dates: start: 201706

REACTIONS (1)
  - Hypertension [None]

NARRATIVE: CASE EVENT DATE: 20180226
